FAERS Safety Report 21355827 (Version 2)
Quarter: 2022Q3

REPORT INFORMATION
  Report Type: Report from Study
  Country: HU (occurrence: HU)
  Receive Date: 20220920
  Receipt Date: 20220921
  Transmission Date: 20221027
  Serious: Yes (Death, Hospitalization, Other)
  Sender: FDA-Public Use
  Company Number: HU-002147023-NVSC2022HU174071

PATIENT
  Age: 76 Year
  Sex: Female

DRUGS (13)
  1. PANTOPRAZOLE [Suspect]
     Active Substance: PANTOPRAZOLE
     Dosage: 40 MILLIGRAM
     Route: 048
     Dates: start: 2015, end: 20220331
  2. BISOPROLOL [Suspect]
     Active Substance: BISOPROLOL
     Indication: Atrial fibrillation
     Dosage: 100 MILLIGRAM, QD
     Route: 048
     Dates: start: 20100728
  3. BISOPROLOL [Suspect]
     Active Substance: BISOPROLOL
     Dosage: 10 MILLIGRAM, QD
     Route: 048
     Dates: start: 2015, end: 20220331
  4. RABEPRAZOLE [Suspect]
     Active Substance: RABEPRAZOLE
     Indication: Gastrointestinal disorder
     Dosage: 20 MILLIGRAM
     Route: 048
     Dates: start: 20150201
  5. ENTRESTO [Suspect]
     Active Substance: SACUBITRIL\VALSARTAN
     Indication: Congestive cardiomyopathy
     Dosage: 2 DOSAGE FORM, BID (24/26 MG)
     Route: 065
     Dates: start: 20211202, end: 20220325
  6. ENTRESTO [Suspect]
     Active Substance: SACUBITRIL\VALSARTAN
     Dosage: UNK UNK, BID (49/51 MG)
     Route: 048
     Dates: start: 202201, end: 20220331
  7. ENTRESTO [Suspect]
     Active Substance: SACUBITRIL\VALSARTAN
     Dosage: UNK UNK, BID (24/26 MG)
     Route: 065
  8. ELIQUIS [Concomitant]
     Active Substance: APIXABAN
     Indication: Atrial fibrillation
     Dosage: 12.5 MILLIGRAM
     Route: 048
     Dates: start: 20210401
  9. SPIRONOLACTONE [Concomitant]
     Active Substance: SPIRONOLACTONE
     Indication: Cardiac failure
     Dosage: 25 MILLIGRAM
     Route: 048
     Dates: start: 2015, end: 20220331
  10. SPIRONOLACTONE [Concomitant]
     Active Substance: SPIRONOLACTONE
     Indication: Atrial fibrillation
     Dosage: 12.5 MILLIGRAM
     Route: 048
     Dates: start: 20150201
  11. ENOXAPARIN [Concomitant]
     Active Substance: ENOXAPARIN
     Indication: Atrial fibrillation
     Dosage: 40 MILLIGRAM
     Route: 058
     Dates: start: 202202, end: 20220331
  12. FUROSEMIDE [Concomitant]
     Active Substance: FUROSEMIDE
     Indication: Cardiac failure
     Dosage: 500 MILLIGRAM, QD
     Route: 048
     Dates: start: 201502, end: 20220331
  13. FUROSEMIDE [Concomitant]
     Active Substance: FUROSEMIDE
     Dosage: 250 MILLIGRAM
     Route: 048
     Dates: start: 20150201

REACTIONS (23)
  - Cardiac failure [Fatal]
  - Cardiogenic shock [Fatal]
  - Cardiomegaly [Fatal]
  - Congestive cardiomyopathy [Fatal]
  - Gastrointestinal vascular malformation haemorrhagic [Fatal]
  - Shock [Fatal]
  - Cardiac disorder [Unknown]
  - COVID-19 [Not Recovered/Not Resolved]
  - Oedema [Unknown]
  - Pulmonary congestion [Unknown]
  - Hepatomegaly [Recovered/Resolved]
  - Renal impairment [Unknown]
  - Chronic kidney disease [Unknown]
  - Renal failure [Recovered/Resolved]
  - Asthenia [Not Recovered/Not Resolved]
  - Bronchitis [Unknown]
  - Gastrointestinal wall thickening [Unknown]
  - Drug level decreased [Not Recovered/Not Resolved]
  - Intra-abdominal fluid collection [Unknown]
  - Blood creatinine increased [Not Recovered/Not Resolved]
  - Glomerular filtration rate decreased [Unknown]
  - Crepitations [Unknown]
  - Dizziness [Not Recovered/Not Resolved]

NARRATIVE: CASE EVENT DATE: 20220101
